FAERS Safety Report 25847625 (Version 1)
Quarter: 2025Q3

REPORT INFORMATION
  Report Type: Spontaneous
  Country: US (occurrence: None)
  Receive Date: 20250924
  Receipt Date: 20250924
  Transmission Date: 20251021
  Serious: Yes (Other)
  Sender: FDA-CTU
  Company Number: None

PATIENT
  Age: 81 Year
  Sex: Female
  Weight: 89.8 kg

DRUGS (8)
  1. DUPIXENT [Suspect]
     Active Substance: DUPILUMAB
     Indication: Dermatitis atopic
     Route: 058
     Dates: start: 20250203
  2. OZEMPIC [Concomitant]
     Active Substance: SEMAGLUTIDE
  3. FENOFIBRATE [Concomitant]
     Active Substance: FENOFIBRATE
  4. METFORMIN [Concomitant]
     Active Substance: METFORMIN HYDROCHLORIDE
  5. PAROXETINE [Concomitant]
     Active Substance: PAROXETINE
  6. OLMESARTAN [Concomitant]
     Active Substance: OLMESARTAN
  7. FOLIC ACID [Concomitant]
     Active Substance: FOLIC ACID
  8. VITAMIN D [Concomitant]
     Active Substance: VITAMIN D NOS

REACTIONS (3)
  - Rash erythematous [None]
  - Rash pruritic [None]
  - Skin exfoliation [None]

NARRATIVE: CASE EVENT DATE: 20250924
